FAERS Safety Report 17361647 (Version 1)
Quarter: 2020Q1

REPORT INFORMATION
  Report Type: Spontaneous
  Country: US (occurrence: US)
  Receive Date: 20200203
  Receipt Date: 20200203
  Transmission Date: 20200409
  Serious: No
  Sender: FDA-Public Use
  Company Number: US-PFIZER INC-2017029690

PATIENT
  Age: 74 Year
  Sex: Male

DRUGS (16)
  1. ONDANSETRON HYDROCHLORIDE. [Concomitant]
     Active Substance: ONDANSETRON HYDROCHLORIDE
     Indication: NAUSEA
     Dosage: 12 MG, AS NEEDED (TAKE 1 TABLET BY ORAL ROUTE 3 TIMES EVERY DAY AS NEEDED FOR NAUSEA)
     Route: 048
  2. VITAMIN D3 [Concomitant]
     Active Substance: CHOLECALCIFEROL
     Dosage: 5000 IU, 1X/DAY
     Route: 048
  3. PIOGLITAZONE HCL [Concomitant]
     Active Substance: PIOGLITAZONE
     Dosage: 15 MG, 1X/DAY (TAKE ONE TABLET BY MOUTH EVERY DAY)
     Route: 048
  4. NORCO [Concomitant]
     Active Substance: ACETAMINOPHEN\HYDROCODONE BITARTRATE
     Indication: PAIN
     Dosage: 1 DF, AS NEEDED (10 MG-325 MG, EVERY 8 HOURS AS NEEDED)
     Route: 048
  5. AMLODIPINE BESYLATE. [Concomitant]
     Active Substance: AMLODIPINE BESYLATE
     Dosage: 5 MG, 1X/DAY (TAKE ONE TABLET BY MOUTH EVERY DAY)
     Route: 048
  6. ASPIR 81 [Concomitant]
     Active Substance: ASPIRIN
     Dosage: 81 MG, 1X/DAY (TAKE 1 TABLET BY ORAL ROUTE EVERY DAY)
     Route: 048
  7. ATORVASTATIN CALCIUM. [Concomitant]
     Active Substance: ATORVASTATIN CALCIUM
     Dosage: 20 MG, 1X/DAY (TAKE ONE TABLET BY MOUTH AT BEDTIME)
     Route: 048
  8. LOSARTAN POTASSIUM AND HCTZ [Concomitant]
     Active Substance: HYDROCHLOROTHIAZIDE\LOSARTAN POTASSIUM
     Dosage: 1 DF, 1X/DAY (100 MG-25 MG)
     Route: 048
  9. MELOXICAM. [Concomitant]
     Active Substance: MELOXICAM
     Dosage: 15 MG, 1X/DAY (TAKE ONE TABLET BY MOUTH EVERY MORNING)
     Route: 048
  10. TESSALON [Concomitant]
     Active Substance: BENZONATATE
     Indication: COUGH
     Dosage: 300 MG, AS NEEDED (TAKE 1 CAPSULE BY ORAL ROUTE 3 TIMES EVERY DAY AS NEEDED)
     Route: 048
  11. EXCEDRIN MIGRAINE [Concomitant]
     Active Substance: ACETAMINOPHEN\ASPIRIN\CAFFEINE
     Indication: ARTHRALGIA
     Dosage: TAKE 1-2 CAPLETS TWICE DAILY AS NEEDED (250 MG-250 MG-65 MG TAB)
  12. OMEPRAZOLE. [Concomitant]
     Active Substance: OMEPRAZOLE
     Dosage: 40 MG, 1X/DAY (TAKE ONE CAPSULE BY MOUTH EVERY DAY)
     Route: 048
  13. SOMA [Concomitant]
     Active Substance: CARISOPRODOL
     Indication: PAIN
     Dosage: 1400 MG, AS NEEDED (TAKE 1 TABLET BY ORAL ROUTE 4 TIMES EVERY DAY AS NEEDED FOR PAIN)
     Route: 048
  14. LYRICA [Suspect]
     Active Substance: PREGABALIN
     Dosage: 100 MG, 3X/DAY
     Route: 048
  15. LEVAQUIN [Concomitant]
     Active Substance: LEVOFLOXACIN
     Dosage: 750 MG, 1X/DAY(TAKE 1 TABLET BY ORAL ROUTE EVERY DAY)
     Route: 048
  16. PRILOSEC [Concomitant]
     Active Substance: OMEPRAZOLE MAGNESIUM
     Dosage: 40 MG, 1X/DAY (TAKE 2 BY MOUTH ONCE DAILY)
     Route: 048

REACTIONS (1)
  - Malaise [Unknown]

NARRATIVE: CASE EVENT DATE: 202001
